FAERS Safety Report 20317942 (Version 1)
Quarter: 2022Q1

REPORT INFORMATION
  Report Type: Spontaneous
  Country: US (occurrence: None)
  Receive Date: 20220110
  Receipt Date: 20220110
  Transmission Date: 20220423
  Serious: No
  Sender: FDA-Public Use
  Company Number: None

PATIENT
  Age: 72 Year
  Sex: Female

DRUGS (1)
  1. HUMIRA [Suspect]
     Active Substance: ADALIMUMAB
     Indication: Rheumatoid arthritis
     Dosage: FREQUENCY : EVERY OTHER WEEK;?
     Route: 058
     Dates: start: 20211202, end: 20220110

REACTIONS (4)
  - Histoplasmosis [None]
  - Aspergillus infection [None]
  - Immune system disorder [None]
  - Gait disturbance [None]

NARRATIVE: CASE EVENT DATE: 20211202
